FAERS Safety Report 9922176 (Version 1)
Quarter: 2014Q1

REPORT INFORMATION
  Report Type: Spontaneous
  Country: US (occurrence: None)
  Receive Date: 20140224
  Receipt Date: 20140224
  Transmission Date: 20141002
  Serious: Yes (Life-Threatening, Hospitalization)
  Sender: FDA-Public Use
  Company Number: None

PATIENT
  Age: 80 Year
  Sex: Female
  Weight: 53.6 kg

DRUGS (12)
  1. TEARS AGAIN HYDRATE [Suspect]
     Dosage: 1
     Route: 048
     Dates: start: 20140206, end: 20140216
  2. WARFARIN [Suspect]
     Indication: ATRIAL FIBRILLATION
     Dosage: 1
     Route: 048
  3. ASA 81 MG [Concomitant]
  4. VITAMIN D3 [Concomitant]
  5. B12 [Concomitant]
  6. LASIX [Concomitant]
  7. MAGNESIUM [Concomitant]
  8. METOPROLOL TARTATE [Concomitant]
  9. OMEPRAZOLE [Concomitant]
  10. POTASSIUM  CHLORIDE [Concomitant]
  11. ADVAIR [Concomitant]
  12. SPIRIVA [Concomitant]

REACTIONS (1)
  - Mental status changes [None]
